FAERS Safety Report 12372495 (Version 1)
Quarter: 2016Q2

REPORT INFORMATION
  Report Type: Spontaneous
  Country: US (occurrence: US)
  Receive Date: 20160516
  Receipt Date: 20160516
  Transmission Date: 20160815
  Serious: No
  Sender: FDA-Public Use
  Company Number: US-AMGEN-USASP2016060833

PATIENT
  Age: 65 Year
  Sex: Male

DRUGS (1)
  1. ENBREL [Suspect]
     Active Substance: ETANERCEPT
     Indication: RHEUMATOID ARTHRITIS
     Dosage: 50 MG, QWK
     Route: 065
     Dates: start: 2016

REACTIONS (8)
  - Injection site erythema [Recovered/Resolved]
  - Oral mucosal erythema [Unknown]
  - Gingival erythema [Unknown]
  - Tongue discolouration [Unknown]
  - Back pain [Unknown]
  - Glossodynia [Unknown]
  - Feeling abnormal [Unknown]
  - Swollen tongue [Unknown]

NARRATIVE: CASE EVENT DATE: 2016
